FAERS Safety Report 24036590 (Version 3)
Quarter: 2024Q4

REPORT INFORMATION
  Report Type: Spontaneous
  Country: DE (occurrence: DE)
  Receive Date: 20240701
  Receipt Date: 20241011
  Transmission Date: 20250114
  Serious: Yes (Death, Hospitalization, Other)
  Sender: HRA PHARMA
  Company Number: DE-ORG100014127-2023000678

PATIENT
  Age: 45 Year
  Sex: Male

DRUGS (2)
  1. LYSODREN [Suspect]
     Active Substance: MITOTANE
     Indication: Adrenal gland cancer
     Dosage: 6 G/DAY
     Route: 048
     Dates: start: 20230419, end: 202306
  2. LYSODREN [Suspect]
     Active Substance: MITOTANE
     Indication: Adrenal gland cancer
     Route: 048
     Dates: start: 2023, end: 2023

REACTIONS (8)
  - Electrolyte imbalance [Fatal]
  - Malignant neoplasm progression [Fatal]
  - Hyperadrenocorticism [Recovering/Resolving]
  - Hypothyroidism [Recovering/Resolving]
  - Hypertension [Recovering/Resolving]
  - Hypoaesthesia [Recovering/Resolving]
  - Condition aggravated [Unknown]
  - Psychiatric symptom [Unknown]

NARRATIVE: CASE EVENT DATE: 20230101
